FAERS Safety Report 15190098 (Version 1)
Quarter: 2018Q3

REPORT INFORMATION
  Report Type: Spontaneous
  Country: RO (occurrence: RO)
  Receive Date: 20180724
  Receipt Date: 20180724
  Transmission Date: 20181010
  Serious: Yes (Other)
  Sender: FDA-Public Use
  Company Number: RO-NOVOPROD-610679

PATIENT
  Sex: Female
  Weight: 80 kg

DRUGS (2)
  1. LEVEMIR [Suspect]
     Active Substance: INSULIN DETEMIR
     Indication: TYPE 2 DIABETES MELLITUS
     Dosage: 18 ?L
     Route: 058
     Dates: start: 20180627, end: 20180629
  2. JANUMET [Concomitant]
     Active Substance: METFORMIN HYDROCHLORIDE\SITAGLIPTIN PHOSPHATE
     Dosage: 100/2000MG
     Route: 065
     Dates: start: 2017

REACTIONS (1)
  - Injection site plaque [Recovered/Resolved]

NARRATIVE: CASE EVENT DATE: 20180627
